FAERS Safety Report 4339775-9 (Version None)
Quarter: 2004Q2

REPORT INFORMATION
  Report Type: 
  Country: None (occurrence: None)
  Receive Date: 20040414
  Receipt Date: 20040414
  Transmission Date: 20050107
  Serious: Yes (Other)
  Sender: FDA-Public Use
  Company Number: None

PATIENT
  Sex: Female

DRUGS (1)
  1. CERVIDIL [Suspect]
     Dates: start: 20040328, end: 20040328

REACTIONS (4)
  - COMPLICATIONS OF MATERNAL EXPOSURE TO THERAPEUTIC DRUGS [None]
  - LABOUR COMPLICATION [None]
  - MATERNAL DRUGS AFFECTING FOETUS [None]
  - UTERINE HYPERTONUS [None]
